FAERS Safety Report 5780259-9 (Version None)
Quarter: 2008Q2

REPORT INFORMATION
  Report Type: 
  Country: None (occurrence: None)
  Receive Date: 20080620
  Receipt Date: 20080613
  Transmission Date: 20081010
  Serious: Yes (Other)
  Sender: FDA-Public Use
  Company Number: PHHY2008FR10921

PATIENT
  Age: 31 Year
  Sex: Female

DRUGS (1)
  1. TEGRETOL 200 LC [Suspect]
     Dosage: 200 MG DAILY

REACTIONS (2)
  - ABORTION INDUCED [None]
  - DRUG EXPOSURE DURING PREGNANCY [None]
